FAERS Safety Report 7431981-X (Version None)
Quarter: 2011Q2

REPORT INFORMATION
  Report Type: 
  Country: None (occurrence: None)
  Receive Date: 20110420
  Receipt Date: 20110420
  Transmission Date: 20111010
  Serious: Yes (Death, Life-Threatening, Hospitalization, Disabling, Congenital Anomaly, Other)
  Sender: FDA-Public Use
  Company Number: None

PATIENT
  Age: 26 Year
  Sex: Male
  Weight: 81.1939 kg

DRUGS (2)
  1. HYDROCODONE BITARTRATE + ACETAMINOPHEN [Suspect]
     Indication: PAIN
     Dosage: 1 TAB EVERY 4-6 HOURS PO
     Route: 048
     Dates: start: 20110415, end: 20110419
  2. HYDROCODONE BITARTRATE + ACETAMINOPHEN [Suspect]
     Indication: TOOTH EXTRACTION
     Dosage: 1 TAB EVERY 4-6 HOURS PO
     Route: 048
     Dates: start: 20110415, end: 20110419

REACTIONS (15)
  - DYSPHAGIA [None]
  - MIGRAINE [None]
  - EAR PAIN [None]
  - OROPHARYNGEAL PAIN [None]
  - VOMITING [None]
  - EYE PAIN [None]
  - PHOTOPHOBIA [None]
  - PAIN [None]
  - SOMNOLENCE [None]
  - HEADACHE [None]
  - PYREXIA [None]
  - DIZZINESS [None]
  - NAUSEA [None]
  - SINUSITIS [None]
  - SINUS HEADACHE [None]
